FAERS Safety Report 15994717 (Version 1)
Quarter: 2019Q1

REPORT INFORMATION
  Report Type: Spontaneous
  Country: US (occurrence: US)
  Receive Date: 20190221
  Receipt Date: 20190221
  Transmission Date: 20190418
  Serious: Yes (Other)
  Sender: FDA-Public Use
  Company Number: None

PATIENT
  Age: 63 Year
  Sex: Female

DRUGS (1)
  1. OXYCODONE [Suspect]
     Active Substance: OXYCODONE
     Indication: PAIN
     Dates: start: 20190115, end: 20190115

REACTIONS (5)
  - Hallucination, visual [None]
  - Euphoric mood [None]
  - Hunger [None]
  - Mental impairment [None]
  - Feeling abnormal [None]

NARRATIVE: CASE EVENT DATE: 20190115
